FAERS Safety Report 21706767 (Version 4)
Quarter: 2024Q4

REPORT INFORMATION
  Report Type: Spontaneous
  Country: US (occurrence: US)
  Receive Date: 20221209
  Receipt Date: 20241218
  Transmission Date: 20250115
  Serious: Yes (Other)
  Sender: PFIZER
  Company Number: US-PFIZER INC-PV202200108444

PATIENT
  Age: 81 Year
  Sex: Male
  Weight: 86.168 kg

DRUGS (5)
  1. VYNDAMAX [Suspect]
     Active Substance: TAFAMIDIS
     Indication: Cardiac amyloidosis
     Dosage: TAKE 1 CAPSULE BY MOUTH ONCE DAILY-ORAL
     Route: 048
     Dates: end: 2021
  2. VYNDAMAX [Suspect]
     Active Substance: TAFAMIDIS
     Indication: Acquired ATTR amyloidosis
     Dosage: ONE 61 MG TAFAMIDIS CAPSULE ORALLY ONCE DAILY
     Route: 048
  3. XALATAN [Concomitant]
     Active Substance: LATANOPROST
     Dosage: USE 1 DROP IN BOTH EYES ONCE DAILY. BOTH EYES
     Route: 047
     Dates: start: 20180430
  4. CRESTOR [Concomitant]
     Active Substance: ROSUVASTATIN CALCIUM
     Dosage: TAKE ONE TABLET BY MOUTH EVERY OTHER DAY, INCREASING TO DAILY AS TOLERATED
     Route: 048
     Dates: start: 20240523
  5. CRESTOR [Concomitant]
     Active Substance: ROSUVASTATIN CALCIUM
     Dosage: TAKE ONE TABLET BY MOUTH EVERY OTHER DAY, INCREASING TO DAILY AS TOLERATED
     Route: 048

REACTIONS (17)
  - Cardiac failure congestive [Unknown]
  - Carotid artery stenosis [Unknown]
  - Cardiac failure [Unknown]
  - Myocardial infarction [Unknown]
  - Pericardial effusion [Unknown]
  - Disease recurrence [Unknown]
  - Dyspnoea exertional [Not Recovered/Not Resolved]
  - Sinus arrhythmia [Unknown]
  - Atrioventricular block first degree [Unknown]
  - Bundle branch block right [Unknown]
  - Electrocardiogram T wave abnormal [Unknown]
  - Ischaemia [Unknown]
  - Left ventricular dilatation [Unknown]
  - Cardiac septal hypertrophy [Unknown]
  - Ejection fraction decreased [Unknown]
  - Left atrial enlargement [Unknown]
  - Lymphadenopathy mediastinal [Unknown]

NARRATIVE: CASE EVENT DATE: 20240901
